FAERS Safety Report 14152785 (Version 2)
Quarter: 2017Q4

REPORT INFORMATION
  Report Type: Spontaneous
  Country: JP (occurrence: JP)
  Receive Date: 20171102
  Receipt Date: 20171214
  Transmission Date: 20180321
  Serious: Yes (Hospitalization, Other)
  Sender: FDA-Public Use
  Company Number: JP-GLAXOSMITHKLINE-JP2017JPN166438

PATIENT
  Age: 8 Decade
  Sex: Male

DRUGS (4)
  1. CANDESARTAN CILEXETIL TABLET [Concomitant]
     Dosage: 2 MG, QD
     Dates: end: 20171028
  2. DILTIAZEM HYDROCHLORIDE R [Concomitant]
     Active Substance: DILTIAZEM HYDROCHLORIDE
     Dosage: 100 MG, QD
     Dates: end: 20171028
  3. PITAVASTATIN CALCIUM TABLET [Suspect]
     Active Substance: PITAVASTATIN CALCIUM
     Dosage: 1 MG, 1D
     Route: 048
     Dates: end: 2017
  4. AVOLVE [Suspect]
     Active Substance: DUTASTERIDE
     Indication: BENIGN PROSTATIC HYPERPLASIA
     Dosage: 0.5 MG, QD
     Route: 048
     Dates: start: 20170627, end: 20171028

REACTIONS (3)
  - Rhabdomyolysis [Recovered/Resolved]
  - Pyrexia [Recovered/Resolved]
  - Atonic seizures [None]

NARRATIVE: CASE EVENT DATE: 20171028
